FAERS Safety Report 5061552-4 (Version None)
Quarter: 2006Q3

REPORT INFORMATION
  Report Type: 
  Country: None (occurrence: None)
  Receive Date: 20060721
  Receipt Date: 20060705
  Transmission Date: 20061208
  Serious: Yes (Hospitalization)
  Sender: FDA-Public Use
  Company Number: 227491

PATIENT
  Age: 75 Year
  Sex: Female
  Weight: 61.2 kg

DRUGS (3)
  1. AVASTIN [Suspect]
     Indication: PANCREATIC CARCINOMA
     Dosage: 5  MG/KG, INTRAVENOUS
     Route: 042
     Dates: start: 20060110
  2. XELODA [Suspect]
     Indication: PANCREATIC CARCINOMA
     Dosage: 825 MG/M2, BID, ORAL
     Route: 048
     Dates: start: 20060110
  3. RADIOTHERAPY (RADIATION THERAPY) [Concomitant]

REACTIONS (2)
  - OESOPHAGITIS [None]
  - WEIGHT DECREASED [None]
